FAERS Safety Report 5292462-5 (Version None)
Quarter: 2007Q2

REPORT INFORMATION
  Report Type: 
  Country: None (occurrence: None)
  Receive Date: 20070410
  Receipt Date: 20070330
  Transmission Date: 20071010
  Serious: Yes (Disabling)
  Sender: FDA-Public Use
  Company Number: FR-PFIZER INC-2007012431

PATIENT
  Sex: Male
  Weight: 80 kg

DRUGS (1)
  1. TAHOR [Suspect]
     Indication: HYPERCHOLESTEROLAEMIA
     Route: 048
     Dates: start: 20061102, end: 20061110

REACTIONS (3)
  - HYPERAESTHESIA [None]
  - HYPOKINESIA [None]
  - NEURALGIA [None]
